FAERS Safety Report 15181433 (Version 2)
Quarter: 2018Q3

REPORT INFORMATION
  Report Type: Spontaneous
  Country: US (occurrence: US)
  Receive Date: 20180723
  Receipt Date: 20180726
  Transmission Date: 20181010
  Serious: Yes (Other)
  Sender: FDA-Public Use
  Company Number: US-LUNDBECK-DKLU2051580

PATIENT
  Age: 85 Year
  Sex: Male

DRUGS (5)
  1. NORTHERA [Suspect]
     Active Substance: DROXIDOPA
     Indication: IRRITABILITY
  2. NORTHERA [Suspect]
     Active Substance: DROXIDOPA
     Indication: PARKINSON^S DISEASE
     Dosage: TITRATION SCHEDULE C (WITHOUT TITRATION)
     Route: 048
     Dates: start: 20180710
  3. NORTHERA [Suspect]
     Active Substance: DROXIDOPA
     Indication: ANGER
  4. NORTHERA [Suspect]
     Active Substance: DROXIDOPA
     Indication: DIZZINESS
     Route: 048
     Dates: start: 20180711
  5. NORTHERA [Suspect]
     Active Substance: DROXIDOPA
     Indication: INSOMNIA

REACTIONS (5)
  - Dyspnoea [Unknown]
  - Malaise [Unknown]
  - Confusional state [Unknown]
  - Hypertension [Unknown]
  - Amnesia [Unknown]

NARRATIVE: CASE EVENT DATE: 20180719
